FAERS Safety Report 22641978 (Version 1)
Quarter: 2023Q2

REPORT INFORMATION
  Report Type: Other
  Country: None (occurrence: TW)
  Receive Date: 20230626
  Receipt Date: 20230626
  Transmission Date: 20230722
  Serious: Yes (Hospitalization)
  Sender: FDA-Public Use
  Company Number: TW-B.Braun Medical Inc.-2143125

PATIENT
  Age: 39 Year
  Sex: Male

DRUGS (9)
  1. CEFEPIME HYDROCHLORIDE AND DEXTROSE [Suspect]
     Active Substance: CEFEPIME HYDROCHLORIDE
     Indication: Brain abscess
  2. CALCIPOTRIENE [Concomitant]
     Active Substance: CALCIPOTRIENE
  3. METHOTREXATE [Concomitant]
     Active Substance: METHOTREXATE
  4. CYCLOSPORINE [Concomitant]
     Active Substance: CYCLOSPORINE
  5. ADALIMUMAB [Concomitant]
     Active Substance: ADALIMUMAB
  6. VANCOMYCIN [Suspect]
     Active Substance: VANCOMYCIN
  7. METRONIDAZOLE [Suspect]
     Active Substance: METRONIDAZOLE
  8. CEFTRIAXONE [Suspect]
     Active Substance: CEFTRIAXONE
  9. TEICOPLANIN [Suspect]
     Active Substance: TEICOPLANIN

REACTIONS (1)
  - Drug reaction with eosinophilia and systemic symptoms [Recovering/Resolving]
